FAERS Safety Report 24087168 (Version 1)
Quarter: 2024Q3

REPORT INFORMATION
  Report Type: Spontaneous
  Country: DE (occurrence: DE)
  Receive Date: 20240713
  Receipt Date: 20240713
  Transmission Date: 20241017
  Serious: Yes (Life-Threatening, Hospitalization, Disabling, Other)
  Sender: DR REDDYS
  Company Number: None

PATIENT
  Age: 42 Year
  Sex: Male
  Weight: 64 kg

DRUGS (3)
  1. CETIRIZINE HYDROCHLORIDE [Suspect]
     Active Substance: CETIRIZINE HYDROCHLORIDE
     Indication: Seasonal allergy
     Dosage: 1
  2. ASPIRIN\PSEUDOEPHEDRINE HYDROCHLORIDE [Suspect]
     Active Substance: ASPIRIN\PSEUDOEPHEDRINE HYDROCHLORIDE
     Indication: Upper respiratory tract infection
     Dosage: 1 BAG
     Route: 048
     Dates: start: 20240403, end: 20240403
  3. ASPIRIN\PSEUDOEPHEDRINE HYDROCHLORIDE [Suspect]
     Active Substance: ASPIRIN\PSEUDOEPHEDRINE HYDROCHLORIDE
     Indication: Nasopharyngitis

REACTIONS (7)
  - Arteriospasm coronary [Recovered/Resolved with Sequelae]
  - Acute myocardial infarction [Not Recovered/Not Resolved]
  - Acute myocardial infarction [Recovered/Resolved with Sequelae]
  - Resuscitation [Not Recovered/Not Resolved]
  - Ventricular fibrillation [Unknown]
  - Chest pain [Unknown]
  - Hyperhidrosis [Unknown]

NARRATIVE: CASE EVENT DATE: 20240403
